FAERS Safety Report 13530699 (Version 1)
Quarter: 2017Q2

REPORT INFORMATION
  Report Type: Spontaneous
  Country: US (occurrence: US)
  Receive Date: 20170509
  Receipt Date: 20170509
  Transmission Date: 20170830
  Serious: Yes (Life-Threatening, Hospitalization, Disabling, Other)
  Sender: FDA-Public Use
  Company Number: None

PATIENT
  Sex: Female
  Weight: 79.22 kg

DRUGS (9)
  1. VITAMIN D3 [Concomitant]
     Active Substance: CHOLECALCIFEROL
  2. CAYNTH SHELL CAL [Concomitant]
  3. DIPRIVAN [Suspect]
     Active Substance: PROPOFOL
     Indication: NEOPLASM MALIGNANT
     Dosage: ANESTHESIA IV ? IV FOR SERIOUS SURGERIES
     Route: 042
     Dates: start: 2012, end: 2017
  4. MOTRIN [Concomitant]
     Active Substance: IBUPROFEN
  5. SEVACOL [Concomitant]
  6. ABD TRACE, SYN [Concomitant]
  7. LOPED [Concomitant]
  8. HS VISION [Concomitant]
  9. ABILIFY [Concomitant]
     Active Substance: ARIPIPRAZOLE

REACTIONS (5)
  - Dyspnoea [None]
  - Dyskinesia [None]
  - Aggression [None]
  - Fear of death [None]
  - Tremor [None]
